FAERS Safety Report 4354017-6 (Version None)
Quarter: 2004Q2

REPORT INFORMATION
  Report Type: 
  Country: None (occurrence: None)
  Receive Date: 20040503
  Receipt Date: 20040426
  Transmission Date: 20050107
  Serious: Yes (Other)
  Sender: FDA-Public Use
  Company Number: STA-AE-04-MTX-175

PATIENT
  Age: 75 Year
  Sex: Male

DRUGS (1)
  1. RHEUMATREX [Suspect]
     Indication: RHEUMATOID ARTHRITIS
     Dosage: 8 MG 1X PER 1 WK, ORAL
     Route: 048
     Dates: start: 19940101, end: 20030101

REACTIONS (7)
  - C-REACTIVE PROTEIN INCREASED [None]
  - CONDITION AGGRAVATED [None]
  - DYSPNOEA [None]
  - LYMPHOCYTE STIMULATION TEST POSITIVE [None]
  - PLEURAL EFFUSION [None]
  - PLEURAL FIBROSIS [None]
  - PLEURISY [None]
